FAERS Safety Report 24877478 (Version 1)
Quarter: 2025Q1

REPORT INFORMATION
  Report Type: Spontaneous
  Country: FR (occurrence: FR)
  Receive Date: 20250123
  Receipt Date: 20250123
  Transmission Date: 20250409
  Serious: Yes (Other)
  Sender: TEVA
  Company Number: FR-EMA-DD-20210120-pawar_p-105705

PATIENT
  Sex: Male

DRUGS (1)
  1. BISOPROLOL [Suspect]
     Active Substance: BISOPROLOL
     Indication: Blood pressure abnormal
     Route: 065

REACTIONS (3)
  - Ventricular hypokinesia [Unknown]
  - Conduction disorder [Unknown]
  - Left ventricular dilatation [Unknown]
